FAERS Safety Report 7638666-5 (Version None)
Quarter: 2011Q3

REPORT INFORMATION
  Report Type: 
  Country: None (occurrence: None)
  Receive Date: 20110720
  Receipt Date: 20110708
  Transmission Date: 20111222
  Serious: Yes (Death)
  Sender: FDA-Public Use
  Company Number: 2011P1007647

PATIENT
  Age: 4 Year
  Sex: Male

DRUGS (1)
  1. ALBENZA [Suspect]
     Indication: HELMINTHIC INFECTION
     Dosage: 400 MG;X1;PO
     Route: 048
     Dates: start: 20110121, end: 20110121

REACTIONS (3)
  - POISONING [None]
  - PRODUCT QUALITY ISSUE [None]
  - ASPIRATION [None]
